FAERS Safety Report 7937744-0 (Version None)
Quarter: 2011Q4

REPORT INFORMATION
  Report Type: 
  Country: None (occurrence: None)
  Receive Date: 20111123
  Receipt Date: 20111117
  Transmission Date: 20120403
  Serious: Yes (Other)
  Sender: FDA-Public Use
  Company Number: PHEH2006US11225

PATIENT
  Sex: Male
  Weight: 83.447 kg

DRUGS (15)
  1. NORVASC [Concomitant]
  2. RESTORIL [Concomitant]
  3. VASOTEC [Concomitant]
  4. AREDIA [Suspect]
  5. ZOCOR [Concomitant]
  6. FELODIPINE [Concomitant]
  7. ASPIRIN [Concomitant]
  8. INSULIN [Suspect]
  9. ZOMETA [Suspect]
     Dosage: UNK
     Dates: end: 20051020
  10. DIOVAN [Concomitant]
  11. ACIPHEX [Concomitant]
  12. ASPIRIN [Concomitant]
  13. METFORMIN [Concomitant]
  14. PLAVIX [Concomitant]
  15. AVANDIA [Concomitant]

REACTIONS (35)
  - DIZZINESS [None]
  - HYPERTENSION [None]
  - CARDIAC MURMUR [None]
  - PAIN [None]
  - BRONCHITIS CHRONIC [None]
  - HYPOGLYCAEMIA [None]
  - CORONARY ARTERY DISEASE [None]
  - ANGINA PECTORIS [None]
  - CHRONIC OBSTRUCTIVE PULMONARY DISEASE [None]
  - LOSS OF CONSCIOUSNESS [None]
  - ISCHAEMIA [None]
  - LEFT VENTRICULAR HYPERTROPHY [None]
  - MYOCARDIAL INFARCTION [None]
  - OSTEONECROSIS OF JAW [None]
  - HYPERLIPIDAEMIA [None]
  - DYSPNOEA EXERTIONAL [None]
  - EXPOSED BONE IN JAW [None]
  - GENERAL PHYSICAL HEALTH DETERIORATION [None]
  - ANXIETY [None]
  - DECREASED INTEREST [None]
  - GINGIVAL INFECTION [None]
  - BONE LOSS [None]
  - MULTIPLE MYELOMA [None]
  - PLEURAL FIBROSIS [None]
  - GASTROOESOPHAGEAL REFLUX DISEASE [None]
  - TRICUSPID VALVE INCOMPETENCE [None]
  - EMPHYSEMA [None]
  - HAEMORRHAGE [None]
  - PULMONARY VALVE INCOMPETENCE [None]
  - SYNCOPE [None]
  - ARTERIOSCLEROSIS [None]
  - MITRAL VALVE INCOMPETENCE [None]
  - TYPE 1 DIABETES MELLITUS [None]
  - IMPAIRED HEALING [None]
  - AORTIC VALVE INCOMPETENCE [None]
